FAERS Safety Report 9000156 (Version 2)
Quarter: 2013Q3

REPORT INFORMATION
  Report Type: Report from Study
  Country: CA (occurrence: CA)
  Receive Date: 20130102
  Receipt Date: 20130701
  Transmission Date: 20140515
  Serious: Yes (Other)
  Sender: FDA-Public Use
  Company Number: CA-JNJFOC-20121213590

PATIENT
  Sex: Female
  Weight: 82.5 kg

DRUGS (2)
  1. REMICADE [Suspect]
     Indication: COLITIS ULCERATIVE
     Dosage: 6 DOSES RECEIVED IN TOTAL
     Route: 042
     Dates: start: 20120620, end: 20121203
  2. PREDNISONE [Concomitant]
     Dosage: GRADUALLY DECREASING DOSE
     Route: 048

REACTIONS (1)
  - Rheumatoid arthritis [Unknown]
